FAERS Safety Report 14450278 (Version 2)
Quarter: 2018Q3

REPORT INFORMATION
  Report Type: Spontaneous
  Country: FR (occurrence: FR)
  Receive Date: 20180129
  Receipt Date: 20180704
  Transmission Date: 20181010
  Serious: Yes (Life-Threatening, Hospitalization, Other)
  Sender: FDA-Public Use
  Company Number: FR-ACCORD-062930

PATIENT
  Age: 54 Year
  Sex: Female

DRUGS (3)
  1. PEMETREXED. [Suspect]
     Active Substance: PEMETREXED
     Indication: LUNG ADENOCARCINOMA
     Dosage: FIRST?LINE CHEMOTHERAPY BY 4 CYCLES OF CISPLATIN?PEMETREXED WAS PROPOSED
  2. CISPLATIN. [Suspect]
     Active Substance: CISPLATIN
     Indication: LUNG ADENOCARCINOMA
     Dosage: FIRST?LINE CHEMOTHERAPY BY 4 CYCLES OF CISPLATIN?PEMETREXED WAS PROPOSED
  3. PEGFILGRASTIM [Suspect]
     Active Substance: PEGFILGRASTIM
     Indication: PROPHYLAXIS

REACTIONS (6)
  - Peritoneal haemorrhage [Recovered/Resolved]
  - Hypothermia [Recovered/Resolved]
  - Nausea [Unknown]
  - Vomiting [Unknown]
  - Neutropenia [Unknown]
  - Splenic rupture [Recovered/Resolved]
